FAERS Safety Report 19775324 (Version 6)
Quarter: 2022Q1

REPORT INFORMATION
  Report Type: Spontaneous
  Country: JP (occurrence: JP)
  Receive Date: 20210902
  Receipt Date: 20220303
  Transmission Date: 20220423
  Serious: Yes (Death, Hospitalization, Other)
  Sender: FDA-Public Use
  Company Number: JP-ABBVIE-21K-087-4002552-00

PATIENT
  Sex: Male
  Weight: 60.9 kg

DRUGS (25)
  1. SKYRIZI [Suspect]
     Active Substance: RISANKIZUMAB-RZAA
     Indication: Pustular psoriasis
     Route: 058
     Dates: start: 20210608, end: 20210608
  2. HUMIRA [Suspect]
     Active Substance: ADALIMUMAB
     Indication: Pustular psoriasis
     Route: 058
     Dates: start: 20210720, end: 20210720
  3. HUMIRA [Suspect]
     Active Substance: ADALIMUMAB
     Route: 058
     Dates: start: 20210803
  4. PREDONINE [Suspect]
     Active Substance: PREDNISOLONE
     Indication: Pustular psoriasis
     Route: 041
     Dates: start: 20210709, end: 202107
  5. PREDONINE [Suspect]
     Active Substance: PREDNISOLONE
     Route: 041
     Dates: start: 20210714
  6. PREDONINE [Suspect]
     Active Substance: PREDNISOLONE
     Indication: Polymyalgia rheumatica
     Route: 048
     Dates: start: 20201218, end: 20201224
  7. PREDONINE [Suspect]
     Active Substance: PREDNISOLONE
     Route: 048
     Dates: start: 20201225, end: 20210104
  8. PREDONINE [Suspect]
     Active Substance: PREDNISOLONE
     Route: 048
     Dates: start: 20210105, end: 20210118
  9. PREDONINE [Suspect]
     Active Substance: PREDNISOLONE
     Route: 048
     Dates: start: 20210119, end: 20210215
  10. PREDONINE [Suspect]
     Active Substance: PREDNISOLONE
     Route: 048
     Dates: start: 20210216, end: 20210705
  11. PREDONINE [Suspect]
     Active Substance: PREDNISOLONE
     Route: 048
     Dates: start: 20210721, end: 202107
  12. PREDONINE [Suspect]
     Active Substance: PREDNISOLONE
     Route: 048
     Dates: start: 20210728
  13. ETRETINATE [Suspect]
     Active Substance: ETRETINATE
     Indication: Psoriasis
     Route: 048
     Dates: start: 202012
  14. ETRETINATE [Suspect]
     Active Substance: ETRETINATE
     Route: 065
     Dates: start: 20210714, end: 20210719
  15. ATORVASTATIN CALCIUM [Concomitant]
     Active Substance: ATORVASTATIN CALCIUM
     Indication: Hypercholesterolaemia
     Route: 048
  16. SPIRONOLACTONE [Concomitant]
     Active Substance: SPIRONOLACTONE
     Indication: Cardiac failure chronic
     Route: 048
  17. BISOPROLOL FUMARATE [Concomitant]
     Active Substance: BISOPROLOL FUMARATE
     Indication: Cardiac failure chronic
     Route: 048
  18. WARFARIN POTASSIUM [Concomitant]
     Active Substance: WARFARIN POTASSIUM
     Indication: Atrial fibrillation
     Route: 048
  19. TELMISARTAN [Concomitant]
     Active Substance: TELMISARTAN
     Indication: Hypertension
     Route: 048
  20. FEBUXOSTAT [Concomitant]
     Active Substance: FEBUXOSTAT
     Indication: Hyperuricaemia
     Route: 048
  21. ELDECALCITOL [Concomitant]
     Active Substance: ELDECALCITOL
     Indication: Osteoporosis
     Route: 048
  22. LINAGLIPTIN [Concomitant]
     Active Substance: LINAGLIPTIN
     Indication: Diabetes mellitus
     Route: 048
  23. OLOPATADINE HYDROCHLORIDE [Concomitant]
     Active Substance: OLOPATADINE HYDROCHLORIDE
     Indication: Pruritus
     Route: 048
  24. LEVOCETIRIZINE HYDROCHLORIDE [Concomitant]
     Active Substance: LEVOCETIRIZINE HYDROCHLORIDE
     Indication: Pruritus
     Route: 048
  25. FUROSEMIDE [Concomitant]
     Active Substance: FUROSEMIDE
     Indication: Cardiac failure chronic
     Route: 048

REACTIONS (6)
  - Pneumocystis jirovecii pneumonia [Fatal]
  - Pustular psoriasis [Recovering/Resolving]
  - Adrenal insufficiency [Recovering/Resolving]
  - Blood beta-D-glucan increased [Unknown]
  - Renal impairment [Recovering/Resolving]
  - Diarrhoea [Recovering/Resolving]

NARRATIVE: CASE EVENT DATE: 20210101
